FAERS Safety Report 6188947-X (Version None)
Quarter: 2009Q2

REPORT INFORMATION
  Report Type: 
  Country: None (occurrence: None)
  Receive Date: 20090513
  Receipt Date: 20090505
  Transmission Date: 20091009
  Serious: Yes (Other)
  Sender: FDA-Public Use
  Company Number: PHEH2009US01509

PATIENT
  Age: 61 Year
  Sex: Female

DRUGS (5)
  1. RECLAST [Suspect]
     Dosage: UNK
     Dates: start: 20071026
  2. ZOCOR [Concomitant]
     Dosage: ONE DAILY
  3. ASPIRIN [Concomitant]
  4. VITAMINS [Concomitant]
  5. EVISTA [Concomitant]
     Dosage: 60 MG, QD
     Route: 048

REACTIONS (7)
  - CARDIAC STRESS TEST ABNORMAL [None]
  - CHEST PAIN [None]
  - DIZZINESS [None]
  - DYSPNOEA [None]
  - ELECTROCARDIOGRAM ABNORMAL [None]
  - FATIGUE [None]
  - HEAD DISCOMFORT [None]
